FAERS Safety Report 14936576 (Version 1)
Quarter: 2018Q2

REPORT INFORMATION
  Report Type: Spontaneous
  Country: US (occurrence: US)
  Receive Date: 20180525
  Receipt Date: 20180525
  Transmission Date: 20180711
  Serious: No
  Sender: FDA-Public Use
  Company Number: US-TEVA-798234USA

PATIENT
  Sex: Female

DRUGS (1)
  1. CLONIDINE. [Suspect]
     Active Substance: CLONIDINE

REACTIONS (4)
  - Product adhesion issue [Unknown]
  - Rash [Unknown]
  - Pruritus [Unknown]
  - Wrong technique in product usage process [Unknown]
